FAERS Safety Report 14194987 (Version 2)
Quarter: 2017Q4

REPORT INFORMATION
  Report Type: Spontaneous
  Country: US (occurrence: US)
  Receive Date: 20171116
  Receipt Date: 20171128
  Transmission Date: 20180321
  Serious: Yes (Death, Hospitalization)
  Sender: FDA-Public Use
  Company Number: US-PFIZER INC-2017490716

PATIENT
  Age: 15 Year
  Sex: Female
  Weight: 41 kg

DRUGS (1)
  1. LIDOCAINE. [Suspect]
     Active Substance: LIDOCAINE
     Indication: STOMATITIS
     Dosage: 49 MG/KG, UNK (SHE COULD HAVE ACUTELY INGESTED UP TO 2 G (49 MG/KG) OF LIDOCAINE)
     Route: 048

REACTIONS (5)
  - Cardiac arrest [Fatal]
  - Overdose [Fatal]
  - Seizure [Fatal]
  - Electrocardiogram QRS complex prolonged [Fatal]
  - Coma [Fatal]
